FAERS Safety Report 10201544 (Version 2)
Quarter: 2014Q2

REPORT INFORMATION
  Report Type: Spontaneous
  Country: US (occurrence: US)
  Receive Date: 20140528
  Receipt Date: 20140528
  Transmission Date: 20141212
  Serious: No
  Sender: FDA-Public Use
  Company Number: US-ASTRAZENECA-2014SE27257

PATIENT
  Sex: Female
  Weight: 45.8 kg

DRUGS (2)
  1. SYMBICORT [Suspect]
     Dosage: 80/4.5, 2 PUFFS DAILY
     Route: 055
  2. ABULTEROL [Concomitant]

REACTIONS (3)
  - Dyspnoea [Unknown]
  - Malaise [Not Recovered/Not Resolved]
  - Intentional product misuse [Not Recovered/Not Resolved]
